FAERS Safety Report 7608241-7 (Version None)
Quarter: 2011Q3

REPORT INFORMATION
  Report Type: 
  Country: None (occurrence: None)
  Receive Date: 20110714
  Receipt Date: 20110629
  Transmission Date: 20111222
  Serious: No
  Sender: FDA-Public Use
  Company Number: US-B.I. PHARMACEUTICALS,INC./RIDGEFIELD-2011-BP-16601BP

PATIENT
  Age: 56 Year
  Sex: Male

DRUGS (3)
  1. METOPROLOL [Concomitant]
     Indication: HYPERTENSION
  2. COZAAR [Concomitant]
     Indication: HYPERTENSION
  3. PRADAXA [Suspect]
     Indication: ATRIAL FIBRILLATION
     Dosage: 300 MG
     Route: 048
     Dates: start: 20110401

REACTIONS (2)
  - SCAR [None]
  - IMPAIRED HEALING [None]
